FAERS Safety Report 23503572 (Version 3)
Quarter: 2024Q2

REPORT INFORMATION
  Report Type: Report from Study
  Country: US (occurrence: US)
  Receive Date: 20240208
  Receipt Date: 20240420
  Transmission Date: 20240716
  Serious: Yes (Other)
  Sender: FDA-Public Use
  Company Number: US-ABBVIE-5629055

PATIENT
  Sex: Male

DRUGS (1)
  1. HUMIRA [Suspect]
     Active Substance: ADALIMUMAB
     Indication: Rheumatoid arthritis
     Route: 058
     Dates: start: 20220317

REACTIONS (5)
  - Diabetic blindness [Unknown]
  - Musculoskeletal discomfort [Unknown]
  - Road traffic accident [Unknown]
  - Back injury [Unknown]
  - Back pain [Unknown]
